FAERS Safety Report 17845518 (Version 1)
Quarter: 2020Q2

REPORT INFORMATION
  Report Type: Spontaneous
  Country: IE (occurrence: IE)
  Receive Date: 20200601
  Receipt Date: 20200601
  Transmission Date: 20200714
  Serious: Yes (Hospitalization, Other)
  Sender: FDA-Public Use
  Company Number: IE-LUPIN PHARMACEUTICALS INC.-2020-02507

PATIENT
  Age: 48 Year
  Sex: Female

DRUGS (2)
  1. CLONIDINE. [Suspect]
     Active Substance: CLONIDINE
     Indication: DEPRESSION
     Dosage: UNK
     Route: 065
  2. PROPRANOLOL [Suspect]
     Active Substance: PROPRANOLOL HYDROCHLORIDE
     Indication: HYPERTENSION
     Dosage: UNK
     Route: 065

REACTIONS (7)
  - Acute kidney injury [Recovered/Resolved]
  - Renal artery thrombosis [Recovered/Resolved]
  - Pneumonia aspiration [Recovered/Resolved]
  - Drug withdrawal syndrome [Recovered/Resolved]
  - Polycythaemia [Recovered/Resolved]
  - Hypertensive crisis [Recovered/Resolved]
  - Posterior reversible encephalopathy syndrome [Recovered/Resolved]
